FAERS Safety Report 4763998-8 (Version None)
Quarter: 2005Q3

REPORT INFORMATION
  Report Type: 
  Country: None (occurrence: None)
  Receive Date: 20050908
  Receipt Date: 20050830
  Transmission Date: 20060218
  Serious: Yes (Hospitalization)
  Sender: FDA-Public Use
  Company Number: US-MERCK-0509USA00468

PATIENT
  Age: 46 Year
  Sex: Female

DRUGS (13)
  1. PEPCID RPD [Suspect]
     Indication: PREMEDICATION
     Route: 048
     Dates: start: 20050531
  2. REMICADE [Suspect]
     Route: 041
     Dates: start: 20050122
  3. REMICADE [Suspect]
     Route: 041
     Dates: start: 20050204
  4. REMICADE [Suspect]
     Route: 041
     Dates: start: 20050604
  5. LORNOXICAM [Suspect]
     Indication: RHEUMATOID ARTHRITIS
     Route: 048
     Dates: start: 20050329
  6. VOLTAREN [Suspect]
     Indication: RHEUMATOID ARTHRITIS
     Route: 065
     Dates: start: 20040525
  7. PREMARIN [Suspect]
     Indication: BONE METABOLISM DISORDER
     Route: 048
     Dates: start: 20050323
  8. MEDROXYPROGESTERONE ACETATE [Suspect]
     Indication: BONE METABOLISM DISORDER
     Route: 048
     Dates: start: 20050323
  9. TALION [Suspect]
     Indication: PREMEDICATION
     Route: 048
     Dates: start: 20050531
  10. [THERAPY UNSPECIFIED] [Concomitant]
     Indication: RHEUMATOID ARTHRITIS
     Route: 065
  11. NEUER [Concomitant]
     Indication: DYSPEPSIA
     Route: 048
     Dates: start: 20050329
  12. PREDNISOLONE [Concomitant]
     Indication: RHEUMATOID ARTHRITIS
     Route: 048
  13. RHEUMATREX [Concomitant]
     Route: 048
     Dates: start: 20041029

REACTIONS (2)
  - DYSPNOEA [None]
  - URTICARIA [None]
